FAERS Safety Report 23707579 (Version 16)
Quarter: 2025Q3

REPORT INFORMATION
  Report Type: Spontaneous
  Country: GB (occurrence: GB)
  Receive Date: 20240404
  Receipt Date: 20250709
  Transmission Date: 20251021
  Serious: Yes (Other)
  Sender: SANDOZ
  Company Number: None

PATIENT
  Sex: Male

DRUGS (215)
  1. ACITRETIN [Suspect]
     Active Substance: ACITRETIN
     Route: 059
  2. ACITRETIN [Suspect]
     Active Substance: ACITRETIN
     Route: 059
  3. ACITRETIN [Suspect]
     Active Substance: ACITRETIN
     Indication: Psoriasis
     Route: 065
  4. ACITRETIN [Suspect]
     Active Substance: ACITRETIN
     Route: 050
  5. ACITRETIN [Suspect]
     Active Substance: ACITRETIN
     Route: 048
  6. ACITRETIN [Suspect]
     Active Substance: ACITRETIN
     Route: 065
  7. ACITRETIN [Suspect]
     Active Substance: ACITRETIN
     Route: 065
  8. ACITRETIN [Suspect]
     Active Substance: ACITRETIN
     Route: 065
  9. ACITRETIN [Suspect]
     Active Substance: ACITRETIN
     Route: 065
  10. ACITRETIN [Suspect]
     Active Substance: ACITRETIN
     Route: 065
  11. ACITRETIN [Suspect]
     Active Substance: ACITRETIN
     Route: 065
  12. ACITRETIN [Suspect]
     Active Substance: ACITRETIN
     Route: 065
  13. ACITRETIN [Suspect]
     Active Substance: ACITRETIN
     Route: 065
  14. ACITRETIN [Suspect]
     Active Substance: ACITRETIN
     Route: 065
  15. ACITRETIN [Suspect]
     Active Substance: ACITRETIN
     Route: 065
  16. ACITRETIN [Suspect]
     Active Substance: ACITRETIN
     Route: 065
  17. ACITRETIN [Suspect]
     Active Substance: ACITRETIN
     Route: 065
  18. ACITRETIN [Suspect]
     Active Substance: ACITRETIN
     Route: 065
  19. ACITRETIN [Suspect]
     Active Substance: ACITRETIN
     Route: 065
  20. ACITRETIN [Suspect]
     Active Substance: ACITRETIN
     Route: 065
  21. ACITRETIN [Suspect]
     Active Substance: ACITRETIN
     Route: 050
  22. BETAMETHASONE DIPROPIONATE [Suspect]
     Active Substance: BETAMETHASONE DIPROPIONATE
     Route: 003
  23. BETAMETHASONE DIPROPIONATE [Suspect]
     Active Substance: BETAMETHASONE DIPROPIONATE
     Indication: Product used for unknown indication
     Route: 065
  24. BETAMETHASONE DIPROPIONATE [Suspect]
     Active Substance: BETAMETHASONE DIPROPIONATE
     Route: 065
  25. BETAMETHASONE DIPROPIONATE [Suspect]
     Active Substance: BETAMETHASONE DIPROPIONATE
     Route: 065
  26. CYCLOSPORINE [Suspect]
     Active Substance: CYCLOSPORINE
     Route: 050
  27. CYCLOSPORINE [Suspect]
     Active Substance: CYCLOSPORINE
     Dosage: 300 MG, QMO
     Route: 065
  28. CYCLOSPORINE [Suspect]
     Active Substance: CYCLOSPORINE
     Dosage: 300 MILLIGRAM, MONTHLY
     Route: 048
  29. CYCLOSPORINE [Suspect]
     Active Substance: CYCLOSPORINE
     Dosage: 300 MILLIGRAM, MONTHLY
     Route: 058
  30. CYCLOSPORINE [Suspect]
     Active Substance: CYCLOSPORINE
     Dosage: UNK
     Route: 050
  31. CYCLOSPORINE [Suspect]
     Active Substance: CYCLOSPORINE
     Route: 065
  32. CYCLOSPORINE [Suspect]
     Active Substance: CYCLOSPORINE
     Route: 050
  33. CYCLOSPORINE [Suspect]
     Active Substance: CYCLOSPORINE
     Route: 058
  34. CYCLOSPORINE [Suspect]
     Active Substance: CYCLOSPORINE
     Route: 058
  35. CYCLOSPORINE [Suspect]
     Active Substance: CYCLOSPORINE
     Indication: Psoriasis
     Route: 065
  36. CYCLOSPORINE [Suspect]
     Active Substance: CYCLOSPORINE
     Route: 065
  37. CYCLOSPORINE [Suspect]
     Active Substance: CYCLOSPORINE
     Route: 065
  38. CYCLOSPORINE [Suspect]
     Active Substance: CYCLOSPORINE
     Route: 065
  39. CYCLOSPORINE [Suspect]
     Active Substance: CYCLOSPORINE
     Route: 065
  40. CYCLOSPORINE [Suspect]
     Active Substance: CYCLOSPORINE
     Route: 065
  41. CYCLOSPORINE [Suspect]
     Active Substance: CYCLOSPORINE
     Route: 065
  42. CYCLOSPORINE [Suspect]
     Active Substance: CYCLOSPORINE
     Route: 065
  43. COCODAMOL [Suspect]
     Active Substance: ACETAMINOPHEN\CODEINE PHOSPHATE
     Dosage: 6 DOSAGE FORM, QD (2 DOSAGE FORM, TID (30/500MG 2 TABLETS TDS) ;TIME INTERVAL:0.33333333 DAYS)
     Route: 048
  44. COCODAMOL [Suspect]
     Active Substance: ACETAMINOPHEN\CODEINE PHOSPHATE
     Dosage: 2 DOSAGE FORM, QD (ONCE DAILY)
     Route: 048
  45. COCODAMOL [Suspect]
     Active Substance: ACETAMINOPHEN\CODEINE PHOSPHATE
     Dosage: 2 DOSAGE FORM, TID (30/500MG 2 TABLETS TDS) ;TIME INTERVAL:
     Route: 065
  46. COCODAMOL [Suspect]
     Active Substance: ACETAMINOPHEN\CODEINE PHOSPHATE
     Dosage: 6 DOSAGE FORM, QD (1 TIME EVERY DAY)
     Route: 048
  47. COCODAMOL [Suspect]
     Active Substance: ACETAMINOPHEN\CODEINE PHOSPHATE
     Dosage: 2 DOSAGE FORM, TID (30/500MG 2 TABLETS TDS) ;TIME INTERVAL:)
     Route: 048
  48. COCODAMOL [Suspect]
     Active Substance: ACETAMINOPHEN\CODEINE PHOSPHATE
     Dosage: 6 DOSAGE FORM, QD
     Route: 048
  49. COCODAMOL [Suspect]
     Active Substance: ACETAMINOPHEN\CODEINE PHOSPHATE
     Dosage: 6 DOSAGE FORM, QD
     Route: 065
  50. COCODAMOL [Suspect]
     Active Substance: ACETAMINOPHEN\CODEINE PHOSPHATE
     Dosage: 6 DOSAGE FORM, QD
     Route: 065
  51. COCODAMOL [Suspect]
     Active Substance: ACETAMINOPHEN\CODEINE PHOSPHATE
     Dosage: 6 DOSAGE FORM, QD
     Route: 065
  52. COCODAMOL [Suspect]
     Active Substance: ACETAMINOPHEN\CODEINE PHOSPHATE
     Dosage: 6 DOSAGE FORM, QD
     Route: 065
  53. COCODAMOL [Suspect]
     Active Substance: ACETAMINOPHEN\CODEINE PHOSPHATE
     Indication: Product used for unknown indication
     Route: 065
  54. CODEINE [Suspect]
     Active Substance: CODEINE
     Dosage: 2 DOSAGE FORM, QD (30/500MG 2 TABLETS TDS), DOSAGE FORM TABLETTIME INTERVAL: 0.33333333 DAYS: 30/500
     Route: 065
  55. CODEINE [Suspect]
     Active Substance: CODEINE
     Indication: Product used for unknown indication
     Dosage: 6 DOSAGE FORM, QD, DOSAGE FORM TABLET
     Route: 065
  56. ACETAMINOPHEN\CODEINE PHOSPHATE [Suspect]
     Active Substance: ACETAMINOPHEN\CODEINE PHOSPHATE
     Indication: Product used for unknown indication
     Route: 065
  57. COSENTYX [Suspect]
     Active Substance: SECUKINUMAB
     Dosage: 300 MG, QMO (MONTHLY)
     Route: 059
  58. COSENTYX [Suspect]
     Active Substance: SECUKINUMAB
     Dosage: 300 MG, QMO (MONTHLY)
     Route: 059
  59. COSENTYX [Suspect]
     Active Substance: SECUKINUMAB
     Dosage: 300 MILLIGRAM, MONTHLY QMO (300 MG MONTHLY)
     Route: 059
  60. COSENTYX [Suspect]
     Active Substance: SECUKINUMAB
     Dosage: 300 MILLIGRAM, MONTHLY QMO (300 MG MONTHLY)
     Route: 059
  61. COSENTYX [Suspect]
     Active Substance: SECUKINUMAB
     Dosage: 300 MG MONTHLY
     Route: 058
  62. COSENTYX [Suspect]
     Active Substance: SECUKINUMAB
     Dosage: 300 MG, QMO (MONTHLY)
     Route: 058
  63. COSENTYX [Suspect]
     Active Substance: SECUKINUMAB
     Dosage: 300 MG, QMO (MONTHLY)
     Route: 058
  64. COSENTYX [Suspect]
     Active Substance: SECUKINUMAB
     Dosage: 300 MG, QMO (MONTHLY)
     Route: 058
  65. COSENTYX [Suspect]
     Active Substance: SECUKINUMAB
     Dosage: 300 MG, QMO (MONTHLY)
     Route: 058
  66. COSENTYX [Suspect]
     Active Substance: SECUKINUMAB
     Dosage: 300 MG, QMO (MONTHLY)
     Route: 058
  67. COSENTYX [Suspect]
     Active Substance: SECUKINUMAB
     Dosage: 300 MG, QMO (MONTHLY)
     Route: 058
  68. COSENTYX [Suspect]
     Active Substance: SECUKINUMAB
     Dosage: 300 MG, MONTHLY
     Route: 050
  69. COSENTYX [Suspect]
     Active Substance: SECUKINUMAB
     Dosage: 300 MG, MONTHLY
     Route: 058
  70. COSENTYX [Suspect]
     Active Substance: SECUKINUMAB
     Dosage: 300 MILLIGRAM, MONTHLY QMO (300 MG MONTHLY)
     Route: 058
  71. COSENTYX [Suspect]
     Active Substance: SECUKINUMAB
     Route: 058
  72. COSENTYX [Suspect]
     Active Substance: SECUKINUMAB
     Route: 058
  73. COSENTYX [Suspect]
     Active Substance: SECUKINUMAB
     Route: 050
  74. COSENTYX [Suspect]
     Active Substance: SECUKINUMAB
     Route: 050
  75. COSENTYX [Suspect]
     Active Substance: SECUKINUMAB
     Indication: Product used for unknown indication
     Route: 058
  76. COSENTYX [Suspect]
     Active Substance: SECUKINUMAB
     Route: 050
  77. COSENTYX [Suspect]
     Active Substance: SECUKINUMAB
     Route: 050
  78. COSENTYX [Suspect]
     Active Substance: SECUKINUMAB
     Route: 058
  79. DAIVOBET [Suspect]
     Active Substance: BETAMETHASONE DIPROPIONATE\CALCIPOTRIENE
     Route: 003
  80. DAIVOBET [Suspect]
     Active Substance: BETAMETHASONE DIPROPIONATE\CALCIPOTRIENE
     Route: 065
  81. DAIVOBET [Suspect]
     Active Substance: BETAMETHASONE DIPROPIONATE\CALCIPOTRIENE
     Route: 065
  82. DAIVOBET [Suspect]
     Active Substance: BETAMETHASONE DIPROPIONATE\CALCIPOTRIENE
     Route: 065
  83. DAIVOBET [Suspect]
     Active Substance: BETAMETHASONE DIPROPIONATE\CALCIPOTRIENE
     Route: 065
  84. DAIVOBET [Suspect]
     Active Substance: BETAMETHASONE DIPROPIONATE\CALCIPOTRIENE
     Route: 065
  85. DAIVOBET [Suspect]
     Active Substance: BETAMETHASONE DIPROPIONATE\CALCIPOTRIENE
     Route: 065
  86. DAIVOBET [Suspect]
     Active Substance: BETAMETHASONE DIPROPIONATE\CALCIPOTRIENE
     Route: 065
  87. DAIVOBET [Suspect]
     Active Substance: BETAMETHASONE DIPROPIONATE\CALCIPOTRIENE
     Route: 065
  88. DAIVOBET [Suspect]
     Active Substance: BETAMETHASONE DIPROPIONATE\CALCIPOTRIENE
     Route: 048
  89. DAIVOBET [Suspect]
     Active Substance: BETAMETHASONE DIPROPIONATE\CALCIPOTRIENE
     Route: 048
  90. DAIVOBET [Suspect]
     Active Substance: BETAMETHASONE DIPROPIONATE\CALCIPOTRIENE
     Route: 048
  91. DAIVOBET [Suspect]
     Active Substance: BETAMETHASONE DIPROPIONATE\CALCIPOTRIENE
     Route: 048
  92. DAIVOBET [Suspect]
     Active Substance: BETAMETHASONE DIPROPIONATE\CALCIPOTRIENE
     Route: 048
  93. DAIVOBET [Suspect]
     Active Substance: BETAMETHASONE DIPROPIONATE\CALCIPOTRIENE
     Route: 003
  94. DAIVOBET [Suspect]
     Active Substance: BETAMETHASONE DIPROPIONATE\CALCIPOTRIENE
     Indication: Product used for unknown indication
     Route: 058
  95. DAIVOBET [Suspect]
     Active Substance: BETAMETHASONE DIPROPIONATE\CALCIPOTRIENE
     Route: 065
  96. DAIVOBET [Suspect]
     Active Substance: BETAMETHASONE DIPROPIONATE\CALCIPOTRIENE
     Route: 065
  97. DAIVOBET [Suspect]
     Active Substance: BETAMETHASONE DIPROPIONATE\CALCIPOTRIENE
     Indication: Product used for unknown indication
     Route: 048
  98. BETAMETHASONE DIPROPIONATE\CALCIPOTRIENE MONOHYDRATE [Suspect]
     Active Substance: BETAMETHASONE DIPROPIONATE\CALCIPOTRIENE MONOHYDRATE
     Route: 050
  99. BETAMETHASONE DIPROPIONATE\CALCIPOTRIENE MONOHYDRATE [Suspect]
     Active Substance: BETAMETHASONE DIPROPIONATE\CALCIPOTRIENE MONOHYDRATE
     Route: 050
  100. BETAMETHASONE DIPROPIONATE\CALCIPOTRIENE MONOHYDRATE [Suspect]
     Active Substance: BETAMETHASONE DIPROPIONATE\CALCIPOTRIENE MONOHYDRATE
     Route: 050
  101. BETAMETHASONE DIPROPIONATE\CALCIPOTRIENE MONOHYDRATE [Suspect]
     Active Substance: BETAMETHASONE DIPROPIONATE\CALCIPOTRIENE MONOHYDRATE
     Route: 050
  102. BETAMETHASONE DIPROPIONATE\CALCIPOTRIENE MONOHYDRATE [Suspect]
     Active Substance: BETAMETHASONE DIPROPIONATE\CALCIPOTRIENE MONOHYDRATE
     Route: 050
  103. BETAMETHASONE DIPROPIONATE\CALCIPOTRIENE MONOHYDRATE [Suspect]
     Active Substance: BETAMETHASONE DIPROPIONATE\CALCIPOTRIENE MONOHYDRATE
     Route: 048
  104. BETAMETHASONE DIPROPIONATE\CALCIPOTRIENE MONOHYDRATE [Suspect]
     Active Substance: BETAMETHASONE DIPROPIONATE\CALCIPOTRIENE MONOHYDRATE
     Route: 048
  105. BETAMETHASONE DIPROPIONATE\CALCIPOTRIENE MONOHYDRATE [Suspect]
     Active Substance: BETAMETHASONE DIPROPIONATE\CALCIPOTRIENE MONOHYDRATE
     Indication: Product used for unknown indication
     Route: 048
  106. BETAMETHASONE DIPROPIONATE\CALCIPOTRIENE MONOHYDRATE [Suspect]
     Active Substance: BETAMETHASONE DIPROPIONATE\CALCIPOTRIENE MONOHYDRATE
     Route: 050
  107. BETAMETHASONE DIPROPIONATE\CALCIPOTRIENE MONOHYDRATE [Suspect]
     Active Substance: BETAMETHASONE DIPROPIONATE\CALCIPOTRIENE MONOHYDRATE
     Route: 048
  108. BETAMETHASONE DIPROPIONATE\CALCIPOTRIENE MONOHYDRATE [Suspect]
     Active Substance: BETAMETHASONE DIPROPIONATE\CALCIPOTRIENE MONOHYDRATE
     Route: 058
  109. HUMIRA [Suspect]
     Active Substance: ADALIMUMAB
     Indication: Psoriasis
     Route: 003
  110. HUMIRA [Suspect]
     Active Substance: ADALIMUMAB
     Route: 050
  111. HUMIRA [Suspect]
     Active Substance: ADALIMUMAB
     Route: 058
  112. HUMIRA [Suspect]
     Active Substance: ADALIMUMAB
     Route: 059
  113. HUMIRA [Suspect]
     Active Substance: ADALIMUMAB
     Route: 065
  114. HUMIRA [Suspect]
     Active Substance: ADALIMUMAB
     Route: 065
  115. HYDROXYUREA [Suspect]
     Active Substance: HYDROXYUREA
     Route: 003
  116. HYDROXYUREA [Suspect]
     Active Substance: HYDROXYUREA
     Route: 050
  117. HYDROXYUREA [Suspect]
     Active Substance: HYDROXYUREA
     Route: 050
  118. HYDROXYUREA [Suspect]
     Active Substance: HYDROXYUREA
     Route: 050
  119. HYDROXYUREA [Suspect]
     Active Substance: HYDROXYUREA
     Route: 050
  120. HYDROXYUREA [Suspect]
     Active Substance: HYDROXYUREA
     Route: 050
  121. HYDROXYUREA [Suspect]
     Active Substance: HYDROXYUREA
     Indication: Psoriasis
     Route: 065
  122. HYDROXYUREA [Suspect]
     Active Substance: HYDROXYUREA
     Route: 065
  123. HYDROXYUREA [Suspect]
     Active Substance: HYDROXYUREA
     Route: 065
  124. HYDROXYUREA [Suspect]
     Active Substance: HYDROXYUREA
     Route: 065
  125. HYDROXYUREA [Suspect]
     Active Substance: HYDROXYUREA
     Route: 065
  126. HYDROXYUREA [Suspect]
     Active Substance: HYDROXYUREA
     Route: 065
  127. HYDROXYUREA [Suspect]
     Active Substance: HYDROXYUREA
     Route: 065
  128. HYDROXYUREA [Suspect]
     Active Substance: HYDROXYUREA
     Route: 065
  129. HYDROXYUREA [Suspect]
     Active Substance: HYDROXYUREA
     Route: 065
  130. HYDROXYUREA [Suspect]
     Active Substance: HYDROXYUREA
     Route: 065
  131. HYDROXYUREA [Suspect]
     Active Substance: HYDROXYUREA
     Route: 065
  132. HYDROXYUREA [Suspect]
     Active Substance: HYDROXYUREA
     Route: 065
  133. HYDROXYUREA [Suspect]
     Active Substance: HYDROXYUREA
     Route: 065
  134. HYDROXYUREA [Suspect]
     Active Substance: HYDROXYUREA
     Route: 065
  135. METHOTREXATE [Suspect]
     Active Substance: METHOTREXATE
     Route: 048
  136. METHOTREXATE [Suspect]
     Active Substance: METHOTREXATE
     Route: 050
  137. METHOTREXATE [Suspect]
     Active Substance: METHOTREXATE
     Route: 050
  138. METHOTREXATE [Suspect]
     Active Substance: METHOTREXATE
     Route: 050
  139. METHOTREXATE [Suspect]
     Active Substance: METHOTREXATE
     Route: 050
  140. METHOTREXATE [Suspect]
     Active Substance: METHOTREXATE
     Route: 050
  141. METHOTREXATE [Suspect]
     Active Substance: METHOTREXATE
     Route: 050
  142. METHOTREXATE [Suspect]
     Active Substance: METHOTREXATE
     Indication: Psoriasis
     Route: 065
  143. METHOTREXATE [Suspect]
     Active Substance: METHOTREXATE
     Route: 065
  144. METHOTREXATE [Suspect]
     Active Substance: METHOTREXATE
     Route: 065
  145. METHOTREXATE [Suspect]
     Active Substance: METHOTREXATE
     Route: 065
  146. METHOTREXATE [Suspect]
     Active Substance: METHOTREXATE
     Route: 065
  147. METHOTREXATE [Suspect]
     Active Substance: METHOTREXATE
     Route: 065
  148. METHOTREXATE [Suspect]
     Active Substance: METHOTREXATE
     Route: 065
  149. METHOTREXATE [Suspect]
     Active Substance: METHOTREXATE
     Route: 065
  150. METHOTREXATE [Suspect]
     Active Substance: METHOTREXATE
     Route: 058
  151. METHOTREXATE [Suspect]
     Active Substance: METHOTREXATE
     Route: 065
  152. METHOTREXATE [Suspect]
     Active Substance: METHOTREXATE
     Indication: Psoriasis
     Route: 065
  153. ACETAMINOPHEN\CODEINE PHOSPHATE [Suspect]
     Active Substance: ACETAMINOPHEN\CODEINE PHOSPHATE
     Indication: Product used for unknown indication
     Dosage: 2 DF, TID (30/500MG 2 TABLETS TDS)6 DOSAGE FORM, QD
     Route: 048
  154. ACETAMINOPHEN\CODEINE PHOSPHATE [Suspect]
     Active Substance: ACETAMINOPHEN\CODEINE PHOSPHATE
     Dosage: 6 DF, QD
     Route: 048
  155. SECUKINUMAB [Suspect]
     Active Substance: SECUKINUMAB
     Route: 065
  156. SECUKINUMAB [Suspect]
     Active Substance: SECUKINUMAB
     Route: 065
  157. SECUKINUMAB [Suspect]
     Active Substance: SECUKINUMAB
     Indication: Product used for unknown indication
     Dosage: 300 MG MONTHLY
     Route: 065
  158. SECUKINUMAB [Suspect]
     Active Substance: SECUKINUMAB
     Dosage: 300 MG, QMO, (OROMUCOSAL SUSPENSION)
     Route: 058
  159. SECUKINUMAB [Suspect]
     Active Substance: SECUKINUMAB
     Dosage: 300 MILLIGRAM (300 MG MONTHLY)
     Route: 058
  160. SECUKINUMAB [Suspect]
     Active Substance: SECUKINUMAB
     Dosage: 300 MILLIGRAM (300 MG MONTHLY)(300 MG, QMO) OROMUCOSAL SUSPENSION
     Route: 058
  161. SECUKINUMAB [Suspect]
     Active Substance: SECUKINUMAB
     Route: 050
  162. SECUKINUMAB [Suspect]
     Active Substance: SECUKINUMAB
     Route: 065
  163. SECUKINUMAB [Suspect]
     Active Substance: SECUKINUMAB
     Route: 050
  164. SECUKINUMAB [Suspect]
     Active Substance: SECUKINUMAB
     Route: 065
  165. STELARA [Suspect]
     Active Substance: USTEKINUMAB
     Route: 050
  166. STELARA [Suspect]
     Active Substance: USTEKINUMAB
     Route: 059
  167. STELARA [Suspect]
     Active Substance: USTEKINUMAB
     Route: 065
  168. STELARA [Suspect]
     Active Substance: USTEKINUMAB
     Route: 050
  169. STELARA [Suspect]
     Active Substance: USTEKINUMAB
     Route: 050
  170. STELARA [Suspect]
     Active Substance: USTEKINUMAB
     Route: 050
  171. STELARA [Suspect]
     Active Substance: USTEKINUMAB
     Route: 050
  172. STELARA [Suspect]
     Active Substance: USTEKINUMAB
     Route: 050
  173. STELARA [Suspect]
     Active Substance: USTEKINUMAB
     Route: 058
  174. STELARA [Suspect]
     Active Substance: USTEKINUMAB
     Route: 058
  175. STELARA [Suspect]
     Active Substance: USTEKINUMAB
     Route: 058
  176. STELARA [Suspect]
     Active Substance: USTEKINUMAB
     Route: 058
  177. STELARA [Suspect]
     Active Substance: USTEKINUMAB
     Route: 058
  178. STELARA [Suspect]
     Active Substance: USTEKINUMAB
     Route: 058
  179. STELARA [Suspect]
     Active Substance: USTEKINUMAB
     Route: 058
  180. STELARA [Suspect]
     Active Substance: USTEKINUMAB
     Route: 058
  181. STELARA [Suspect]
     Active Substance: USTEKINUMAB
     Route: 058
  182. STELARA [Suspect]
     Active Substance: USTEKINUMAB
     Route: 058
  183. STELARA [Suspect]
     Active Substance: USTEKINUMAB
     Route: 058
  184. STELARA [Suspect]
     Active Substance: USTEKINUMAB
     Route: 058
  185. STELARA [Suspect]
     Active Substance: USTEKINUMAB
     Route: 058
  186. STELARA [Suspect]
     Active Substance: USTEKINUMAB
     Route: 058
  187. STELARA [Suspect]
     Active Substance: USTEKINUMAB
     Route: 058
  188. STELARA [Suspect]
     Active Substance: USTEKINUMAB
     Route: 058
  189. STELARA [Suspect]
     Active Substance: USTEKINUMAB
     Route: 058
  190. STELARA [Suspect]
     Active Substance: USTEKINUMAB
     Route: 058
  191. STELARA [Suspect]
     Active Substance: USTEKINUMAB
     Route: 058
  192. STELARA [Suspect]
     Active Substance: USTEKINUMAB
     Route: 058
  193. STELARA [Suspect]
     Active Substance: USTEKINUMAB
     Route: 058
  194. STELARA [Suspect]
     Active Substance: USTEKINUMAB
     Route: 058
  195. STELARA [Suspect]
     Active Substance: USTEKINUMAB
     Route: 058
  196. STELARA [Suspect]
     Active Substance: USTEKINUMAB
     Route: 058
  197. STELARA [Suspect]
     Active Substance: USTEKINUMAB
     Route: 058
  198. STELARA [Suspect]
     Active Substance: USTEKINUMAB
     Route: 058
  199. STELARA [Suspect]
     Active Substance: USTEKINUMAB
     Route: 058
  200. STELARA [Suspect]
     Active Substance: USTEKINUMAB
     Route: 058
  201. STELARA [Suspect]
     Active Substance: USTEKINUMAB
     Route: 058
  202. STELARA [Suspect]
     Active Substance: USTEKINUMAB
     Route: 058
  203. STELARA [Suspect]
     Active Substance: USTEKINUMAB
     Route: 058
  204. STELARA [Suspect]
     Active Substance: USTEKINUMAB
     Route: 058
  205. STELARA [Suspect]
     Active Substance: USTEKINUMAB
     Route: 058
  206. STELARA [Suspect]
     Active Substance: USTEKINUMAB
     Route: 058
  207. STELARA [Suspect]
     Active Substance: USTEKINUMAB
     Route: 058
  208. STELARA [Suspect]
     Active Substance: USTEKINUMAB
     Route: 058
  209. STELARA [Suspect]
     Active Substance: USTEKINUMAB
     Route: 058
  210. STELARA [Suspect]
     Active Substance: USTEKINUMAB
     Route: 058
  211. STELARA [Suspect]
     Active Substance: USTEKINUMAB
     Route: 058
  212. STELARA [Suspect]
     Active Substance: USTEKINUMAB
     Indication: Psoriasis
     Route: 065
  213. STELARA [Suspect]
     Active Substance: USTEKINUMAB
     Route: 065
  214. STELARA [Suspect]
     Active Substance: USTEKINUMAB
     Route: 065
  215. STELARA [Suspect]
     Active Substance: USTEKINUMAB
     Route: 065

REACTIONS (9)
  - Wheezing [Unknown]
  - Hypertension [Unknown]
  - Burning sensation [Unknown]
  - Skin hyperpigmentation [Unknown]
  - Chest pain [Unknown]
  - Pruritus [Unknown]
  - Rash [Unknown]
  - Therapeutic product effect incomplete [Unknown]
  - Drug ineffective [Unknown]
